FAERS Safety Report 10314360 (Version 4)
Quarter: 2014Q4

REPORT INFORMATION
  Report Type: Spontaneous
  Country: US (occurrence: US)
  Receive Date: 20140718
  Receipt Date: 20141024
  Transmission Date: 20150528
  Serious: No
  Sender: FDA-Public Use
  Company Number: US-PFIZER INC-2014198114

PATIENT
  Age: 78 Year
  Sex: Female
  Weight: 51.7 kg

DRUGS (1)
  1. AROMASIN [Suspect]
     Active Substance: EXEMESTANE
     Indication: BREAST CANCER
     Dosage: UNK
     Dates: start: 201002, end: 201407

REACTIONS (5)
  - Breast cancer [Unknown]
  - Metastases to lymph nodes [Unknown]
  - Disease progression [Unknown]
  - Metastases to liver [Unknown]
  - Metastases to bone [Unknown]
